FAERS Safety Report 10524690 (Version 2)
Quarter: 2014Q4

REPORT INFORMATION
  Report Type: Spontaneous
  Country: DE (occurrence: DE)
  Receive Date: 20141017
  Receipt Date: 20141113
  Transmission Date: 20150528
  Serious: Yes (Hospitalization, Other)
  Sender: FDA-Public Use
  Company Number: DE-ELI_LILLY_AND_COMPANY-DE201410005615

PATIENT
  Age: 21 Year
  Sex: Female

DRUGS (1)
  1. HUMALOG [Suspect]
     Active Substance: INSULIN LISPRO
     Indication: TYPE 1 DIABETES MELLITUS
     Dosage: UNK
     Route: 058
     Dates: start: 200012, end: 201003

REACTIONS (7)
  - Diabetic ketoacidosis [Recovered/Resolved]
  - Blood glucose fluctuation [Unknown]
  - Hypersensitivity [Unknown]
  - Glycosylated haemoglobin increased [Unknown]
  - Hyperglycaemia [Unknown]
  - Anti-insulin antibody increased [Unknown]
  - Infection [Unknown]
